FAERS Safety Report 8816883 (Version 1)
Quarter: 2012Q4

REPORT INFORMATION
  Report Type: Spontaneous
  Country: FR (occurrence: None)
  Receive Date: 20121002
  Receipt Date: 20121002
  Transmission Date: 20130627
  Serious: Yes (Hospitalization, Other)
  Sender: FDA-Public Use
  Company Number: AUR-APL-2012-04167

PATIENT
  Age: 54 Year
  Sex: Male

DRUGS (7)
  1. LAMOTRIGINE (LAMOTRIGINE) [Suspect]
     Indication: DRUG USE FOR UNKNOWN INDICATION
  2. AMOXICILLIN (AMOXICILLIN) [Suspect]
     Indication: THROAT INFECTION
  3. AMOXICILLIN (AMOXICILLIN) [Suspect]
     Indication: THROAT INFECTION
  4. PREDNISOLONE (PREDNISOLONE) [Concomitant]
  5. FENTANYL (FENTANYL) [Concomitant]
  6. CLONAZEPAM (CLONAZEPAM) [Concomitant]
  7. PAROXETINE (PAROXETINE) [Concomitant]

REACTIONS (27)
  - Rash [None]
  - Skin burning sensation [None]
  - Ocular hyperaemia [None]
  - Eye pain [None]
  - Eye discharge [None]
  - Mouth ulceration [None]
  - Tachycardia [None]
  - Blister [None]
  - Skin exfoliation [None]
  - Stupor [None]
  - Respiratory failure [None]
  - Stevens-Johnson syndrome [None]
  - Toxic epidermal necrolysis [None]
  - Pemphigus [None]
  - Paraneoplastic pemphigus [None]
  - Acute graft versus host disease [None]
  - Staphylococcal scalded skin syndrome [None]
  - Acute generalised exanthematous pustulosis [None]
  - Multi-organ failure [None]
  - Septic shock [None]
  - Dry eye [None]
  - Pigmentation disorder [None]
  - Pyrexia [None]
  - Mucous membrane disorder [None]
  - Erythema [None]
  - Epidermal necrosis [None]
  - Nikolsky^s sign [None]
